FAERS Safety Report 21178548 (Version 1)
Quarter: 2022Q3

REPORT INFORMATION
  Report Type: Report from Study
  Country: CN (occurrence: CN)
  Receive Date: 20220805
  Receipt Date: 20220805
  Transmission Date: 20221027
  Serious: No
  Sender: FDA-Public Use
  Company Number: CN-BAXTER-2021BAX032236

PATIENT
  Age: 64 Year
  Sex: Female
  Weight: 57 kg

DRUGS (9)
  1. AMINO ACIDS\DEXTROSE\ELECTROLYTES NOS\SOYBEAN OIL [Suspect]
     Active Substance: AMINO ACIDS\DEXTROSE\ELECTROLYTES NOS\SOYBEAN OIL
     Dosage: 1500 ML, ONCE DOSE, AT INFUSION RATE 3 ML/KG/H
     Route: 065
     Dates: start: 20210314, end: 20210315
  2. HEPARIN CALCIUM [Concomitant]
     Active Substance: HEPARIN CALCIUM
     Indication: Anticoagulant therapy
     Dosage: 4100 IU (INTERNATIONAL UNIT) ONCE DAILY
     Route: 058
     Dates: start: 20210401, end: 20210411
  3. CEFTIZOXIME SODIUM [Concomitant]
     Active Substance: CEFTIZOXIME SODIUM
     Indication: Rectal cancer
     Dosage: 2G THREE TIMES DAILY VIA INTRAVENOUS(PERIPHERAL VEIN/CENTRAL VEIN)
     Route: 042
     Dates: start: 20210313, end: 20210317
  4. VITAMINS [Concomitant]
     Active Substance: VITAMINS
     Indication: Vitamin supplementation
     Dosage: 5 ML ONCE DAILY VIA INTRAVENOUS(PERIPHERAL VEIN/CENTRAL VEIN)
     Route: 042
     Dates: start: 20210310, end: 20210313
  5. PHLOROGLUCINOL [Concomitant]
     Active Substance: PHLOROGLUCINOL
     Indication: Analgesic therapy
     Dosage: 200MG ONCE DAILY VIA INTRAVENOUS(PERIPHERAL VEIN/CENTRAL VEIN)
     Route: 042
     Dates: start: 20210311, end: 20210313
  6. PHLOROGLUCINOL [Concomitant]
     Active Substance: PHLOROGLUCINOL
     Indication: Tetany
  7. ILAPRAZOLE [Concomitant]
     Active Substance: ILAPRAZOLE
     Indication: Rectal cancer
     Dosage: 20 MG ONCE DAILY VIA INTRAVENOUS(PERIPHERAL VEIN/CENTRAL VEIN)
     Route: 042
     Dates: start: 20210311, end: 20210313
  8. Lipid Emulsion(10%)/Amino Acids(15) and Glucose(20%) [Concomitant]
     Indication: Rectal cancer
     Dosage: 1000 ML, ONCE DAILY VIA INTRAVENOUS(PERIPHERAL VEIN/CENTRAL VEIN)
     Route: 042
     Dates: start: 20210309, end: 20210315
  9. UNSPECIFIED INGREDIENT [Concomitant]
     Active Substance: UNSPECIFIED INGREDIENT
     Indication: Drug therapy
     Dosage: 10 ML
     Route: 065
     Dates: start: 20210314, end: 20210315

REACTIONS (1)
  - Hepatic function abnormal [Recovered/Resolved]

NARRATIVE: CASE EVENT DATE: 20210320
